FAERS Safety Report 13064760 (Version 1)
Quarter: 2016Q4

REPORT INFORMATION
  Report Type: Spontaneous
  Country: JP (occurrence: JP)
  Receive Date: 20161227
  Receipt Date: 20161227
  Transmission Date: 20170207
  Serious: Yes (Other)
  Sender: FDA-Public Use
  Company Number: JP-PFIZER INC-2016592060

PATIENT
  Sex: Female

DRUGS (2)
  1. DIART [Concomitant]
     Active Substance: AZOSEMIDE
     Dosage: UNK
  2. SELARA [Suspect]
     Active Substance: EPLERENONE
     Dosage: 50 MG, 1X/DAY
     Route: 048

REACTIONS (3)
  - Blood potassium increased [Unknown]
  - Diarrhoea [Unknown]
  - Vomiting [Unknown]

NARRATIVE: CASE EVENT DATE: 201612
